FAERS Safety Report 11270176 (Version 3)
Quarter: 2015Q4

REPORT INFORMATION
  Report Type: Spontaneous
  Country: IE (occurrence: IE)
  Receive Date: 20150714
  Receipt Date: 20151027
  Transmission Date: 20160304
  Serious: Yes (Other)
  Sender: FDA-Public Use
  Company Number: IE-TEVA-576115ISR

PATIENT
  Age: 88 Year
  Sex: Female

DRUGS (2)
  1. CLOPIDOGREL [Suspect]
     Active Substance: CLOPIDOGREL BISULFATE
     Route: 065
     Dates: end: 201506
  2. PROLIA [Concomitant]
     Active Substance: DENOSUMAB

REACTIONS (4)
  - Pain [Recovered/Resolved]
  - Lip swelling [Recovered/Resolved]
  - Pruritus generalised [Recovered/Resolved]
  - Musculoskeletal stiffness [Recovered/Resolved]
